FAERS Safety Report 24529009 (Version 1)
Quarter: 2024Q4

REPORT INFORMATION
  Report Type: Spontaneous
  Country: ZA (occurrence: ZA)
  Receive Date: 20241021
  Receipt Date: 20241021
  Transmission Date: 20250115
  Serious: Yes (Other)
  Sender: PFIZER
  Company Number: ZA-PFIZER INC-PV202300106277

PATIENT
  Age: 60 Year
  Sex: Male

DRUGS (3)
  1. METHOTREXATE SODIUM [Suspect]
     Active Substance: METHOTREXATE SODIUM
     Dosage: 20 MG, WEEKLY
     Dates: start: 201708
  2. LEFLUNOMIDE [Suspect]
     Active Substance: LEFLUNOMIDE
     Dosage: 20 MG, DAILY
     Dates: start: 201810
  3. PREDNISONE [Suspect]
     Active Substance: PREDNISONE
     Dosage: 10 MG, DAILY
     Dates: start: 201810

REACTIONS (20)
  - Disease progression [Unknown]
  - Drug ineffective [Unknown]
  - Blood urea decreased [Unknown]
  - Aspartate aminotransferase decreased [Unknown]
  - Blood cholesterol increased [Unknown]
  - Low density lipoprotein increased [Not Recovered/Not Resolved]
  - Blood triglycerides increased [Unknown]
  - C-reactive protein increased [Unknown]
  - White blood cell count increased [Not Recovered/Not Resolved]
  - Neutrophil count increased [Not Recovered/Not Resolved]
  - Lymphocyte count increased [Recovered/Resolved]
  - Monocyte count increased [Not Recovered/Not Resolved]
  - Eosinophil count increased [Recovered/Resolved]
  - Basophil count increased [Recovered/Resolved]
  - Red cell distribution width increased [Unknown]
  - Blood glucose increased [Not Recovered/Not Resolved]
  - Blood creatine increased [Recovered/Resolved]
  - Carbon dioxide decreased [Unknown]
  - Haemoglobin increased [Recovered/Resolved]
  - Haematocrit increased [Recovered/Resolved]

NARRATIVE: CASE EVENT DATE: 20210116
